FAERS Safety Report 5310956-0 (Version None)
Quarter: 2007Q2

REPORT INFORMATION
  Report Type: 
  Country: None (occurrence: None)
  Receive Date: 20070430
  Receipt Date: 20070419
  Transmission Date: 20071010
  Serious: Yes (Other)
  Sender: FDA-Public Use
  Company Number: US-JNJFOC-20070404247

PATIENT
  Age: 63 Year
  Sex: Male
  Weight: 131.54 kg

DRUGS (3)
  1. EXTRA STRENGTH TYLENOL [Suspect]
  2. EXTRA STRENGTH TYLENOL [Suspect]
     Indication: HEADACHE
     Dosage: 1500-3000 MG PER DAY
  3. TOPAMAX [Concomitant]
     Indication: MIGRAINE

REACTIONS (2)
  - AGEUSIA [None]
  - INTENTIONAL DRUG MISUSE [None]
